FAERS Safety Report 8250916 (Version 6)
Quarter: 2017Q2

REPORT INFORMATION
  Report Type: Spontaneous
  Country: US (occurrence: US)
  Receive Date: 20111117
  Receipt Date: 20170509
  Transmission Date: 20170830
  Serious: Yes (Hospitalization, Other)
  Sender: FDA-Public Use
  Company Number: US-AMGEN-USASP2011007812

PATIENT
  Age: 56 Year
  Sex: Male
  Weight: 96 kg

DRUGS (29)
  1. K-PHOS [Concomitant]
     Active Substance: POTASSIUM PHOSPHATE, MONOBASIC
     Dosage: 3000 MG, BID
  2. TOPROL XL [Concomitant]
     Active Substance: METOPROLOL SUCCINATE
     Dosage: 50 MG, PRN
     Route: 048
  3. ARTHROTEC [Concomitant]
     Active Substance: DICLOFENAC SODIUM\MISOPROSTOL
     Dosage: 75 MG, QD
  4. DIPHENHYDRAMINE. [Concomitant]
     Active Substance: DIPHENHYDRAMINE
     Indication: PREMEDICATION
     Dosage: UNK UNK, ONE TIME DOSE
  5. ARTIFICIAL TEARS                   /00445101/ [Concomitant]
     Dosage: UNK
  6. ASPIRIN. [Concomitant]
     Active Substance: ASPIRIN
     Indication: PROPHYLAXIS
     Dosage: 3000 MG, Q12H
  7. K-PHOS [Concomitant]
     Active Substance: POTASSIUM PHOSPHATE, MONOBASIC
     Indication: RICKETS
     Dosage: 2500 MG, Q12H
     Route: 048
  8. NITROSTAT [Concomitant]
     Active Substance: NITROGLYCERIN
     Dosage: 1 UNK, Q5MIN
     Route: 060
  9. ASPIRIN. [Concomitant]
     Active Substance: ASPIRIN
     Dosage: 81 MG, QD
  10. ARTHROTEC [Concomitant]
     Active Substance: DICLOFENAC SODIUM\MISOPROSTOL
     Dosage: 75 MG, BID
  11. COUMADIN [Concomitant]
     Active Substance: WARFARIN SODIUM
     Dosage: UNK
  12. PRILOSEC [Concomitant]
     Active Substance: OMEPRAZOLE MAGNESIUM
     Indication: GASTROOESOPHAGEAL REFLUX DISEASE
     Dosage: 40 MG, QD
     Route: 048
  13. ZOSTAVAX [Concomitant]
     Active Substance: VARICELLA-ZOSTER VIRUS STRAIN OKA/MERCK LIVE ANTIGEN
     Dosage: UNK UNK, ONE TIME DOSE
     Dates: start: 2008, end: 2008
  14. ENBREL [Suspect]
     Active Substance: ETANERCEPT
     Indication: ANKYLOSING SPONDYLITIS
     Dosage: 50 MG, QWK
     Route: 065
     Dates: start: 200308, end: 200903
  15. PROCRIT [Suspect]
     Active Substance: ERYTHROPOIETIN
     Indication: ANAEMIA
     Dosage: UNK
     Route: 065
  16. ARTHROTEC [Concomitant]
     Active Substance: DICLOFENAC SODIUM\MISOPROSTOL
     Indication: PAIN
     Dosage: 25 MG, Q12H
  17. K-PHOS [Concomitant]
     Active Substance: POTASSIUM PHOSPHATE, MONOBASIC
     Dosage: 2000 MG, BID
  18. NEURONTIN [Concomitant]
     Active Substance: GABAPENTIN
     Dosage: 100 MG, UNK
  19. FENTANYL. [Concomitant]
     Active Substance: FENTANYL
     Indication: SEDATIVE THERAPY
     Dosage: 75 MUG, UNK
     Dates: start: 20110411, end: 20110411
  20. NEULASTA [Suspect]
     Active Substance: PEGFILGRASTIM
     Indication: ANAEMIA
     Dosage: 1 UNK, UNK
     Route: 065
  21. IBUPROFEN. [Concomitant]
     Active Substance: IBUPROFEN
     Dosage: 600 MG, Q8H
  22. ASPIRIN (E.C.) [Concomitant]
     Active Substance: ASPIRIN
     Dosage: 182 MG, QD
     Route: 048
  23. LORAZEPAM. [Concomitant]
     Active Substance: LORAZEPAM
     Indication: PREMEDICATION
     Dosage: 1 MG, ONE TIME DOSE
  24. TRIMOX                             /00086101/ [Concomitant]
     Active Substance: SULFAMETHOXAZOLE\TRIMETHOPRIM
     Dosage: UNK
  25. TOPROL XL [Concomitant]
     Active Substance: METOPROLOL SUCCINATE
     Indication: HYPERTENSION
     Dosage: 50 MG, QD
     Route: 048
     Dates: start: 200812
  26. ENBREL [Suspect]
     Active Substance: ETANERCEPT
     Indication: RHEUMATOID ARTHRITIS
  27. K-PHOS [Concomitant]
     Active Substance: POTASSIUM PHOSPHATE, MONOBASIC
     Dosage: 500 MG, UNK
  28. LIPITOR [Concomitant]
     Active Substance: ATORVASTATIN CALCIUM
     Indication: HYPERLIPIDAEMIA
     Dosage: 80 MG, QD
     Route: 048
  29. VERSED [Concomitant]
     Active Substance: MIDAZOLAM HYDROCHLORIDE
     Indication: SEDATIVE THERAPY
     Dosage: 2 MG, UNK
     Dates: start: 20110411, end: 20110411

REACTIONS (46)
  - Malignant melanoma [Recovered/Resolved]
  - Weight increased [Unknown]
  - Erectile dysfunction [Unknown]
  - Rotator cuff syndrome [Unknown]
  - Bronchitis [Unknown]
  - Acute myocardial infarction [Recovered/Resolved]
  - Radiculopathy [Recovering/Resolving]
  - Arrhythmia [Unknown]
  - Migraine with aura [Unknown]
  - Nausea [Unknown]
  - Mood swings [Unknown]
  - Labile hypertension [Unknown]
  - Acute sinusitis [Recovered/Resolved]
  - Pulmonary embolism [Recovered/Resolved]
  - Pneumothorax [Recovered/Resolved]
  - Post procedural haemorrhage [Unknown]
  - Ankylosing spondylitis [Unknown]
  - Marrow hyperplasia [Unknown]
  - Coronary artery disease [Recovered/Resolved]
  - Hyperparathyroidism tertiary [Unknown]
  - Costochondritis [Recovered/Resolved]
  - Cataract [Unknown]
  - Pneumonia [Recovered/Resolved]
  - Fall [Unknown]
  - Corneal scar [Unknown]
  - Back pain [Unknown]
  - Dizziness [Unknown]
  - Diarrhoea [Unknown]
  - Fatigue [Unknown]
  - Gastrooesophageal reflux disease [Unknown]
  - Stress fracture [Unknown]
  - B-cell lymphoma [Recovered/Resolved]
  - General physical health deterioration [Unknown]
  - Cataract operation complication [Unknown]
  - Accommodation disorder [Unknown]
  - Heart rate irregular [Unknown]
  - Osteoporosis [Unknown]
  - Spinal ligament ossification [Unknown]
  - Deafness [Unknown]
  - Hypotension [Unknown]
  - Paraesthesia [Unknown]
  - Bone marrow failure [Unknown]
  - Aneurysm [Recovered/Resolved]
  - Immunosuppression [Unknown]
  - Haemorrhage [Unknown]
  - Nocturia [Unknown]

NARRATIVE: CASE EVENT DATE: 2004
